FAERS Safety Report 8936381 (Version 1)
Quarter: 2012Q4

REPORT INFORMATION
  Report Type: 
  Country: CA (occurrence: CA)
  Receive Date: 20121130
  Receipt Date: 20121130
  Transmission Date: 20130627
  Serious: Yes (Other)
  Sender: FDA-Public Use
  Company Number: CA-ASTRAZENECA-2012SE88819

PATIENT
  Age: 63 Year
  Sex: Female

DRUGS (6)
  1. CRESTOR [Suspect]
     Route: 048
  2. LIPITOR [Suspect]
     Route: 065
  3. PRAVACHOL [Suspect]
     Route: 065
  4. ASPIRIN [Concomitant]
     Route: 065
  5. CORDARONE [Concomitant]
     Route: 065
  6. FUROSEMIDE [Concomitant]
     Route: 065

REACTIONS (4)
  - Asthenia [Unknown]
  - Constipation [Unknown]
  - Pain [Unknown]
  - Throat tightness [Unknown]
